FAERS Safety Report 7494570-7 (Version None)
Quarter: 2011Q2

REPORT INFORMATION
  Report Type: 
  Country: None (occurrence: None)
  Receive Date: 20110520
  Receipt Date: 20110512
  Transmission Date: 20111010
  Serious: Yes (Death, Hospitalization, Other)
  Sender: FDA-Public Use
  Company Number: PHEH2007US03222

PATIENT
  Sex: Female

DRUGS (18)
  1. PRILOSEC [Concomitant]
  2. ACETAMINOPHEN [Concomitant]
  3. MAGNESIUM OXIDE [Concomitant]
     Dosage: 400 MG, BID
  4. CATAPRES [Concomitant]
     Dosage: 0.2 MG, UNK
  5. MELPHALAN HYDROCHLORIDE [Concomitant]
     Dosage: 10MG Q2DAYS
     Dates: start: 20070321
  6. LISINOPRIL [Concomitant]
     Dosage: 20 MG, BID
  7. ASPIRIN [Concomitant]
  8. AMITRIPTYLINE HCL [Concomitant]
     Dosage: 10 MG, QHS
  9. PROTONIX [Concomitant]
     Dosage: 40 MG, QD
  10. DEPAKOTE [Concomitant]
     Dosage: 250 MG, BID
  11. MELPHALAN HYDROCHLORIDE [Concomitant]
     Dosage: 60MG Q2DAYS
     Dates: start: 20070322
  12. ATENOLOL [Concomitant]
     Dosage: 25 MG, BID
  13. NORVASC [Concomitant]
     Dosage: 2.5 MG, BID
  14. LASIX [Concomitant]
  15. ATORVASTATIN [Concomitant]
     Dosage: 10 MG, QD
  16. AREDIA [Suspect]
     Indication: OSTEOPOROSIS
     Dosage: 45MG QMOS
     Route: 042
     Dates: start: 20050519, end: 20070301
  17. VICODIN [Concomitant]
  18. OXYCONTIN [Concomitant]

REACTIONS (33)
  - SPECIFIC GRAVITY URINE INCREASED [None]
  - DYSGEUSIA [None]
  - BLOOD CALCIUM DECREASED [None]
  - NAUSEA [None]
  - GLOMERULONEPHRITIS [None]
  - NEPHROTIC SYNDROME [None]
  - PROTEIN TOTAL DECREASED [None]
  - ALBUMIN GLOBULIN RATIO DECREASED [None]
  - IRON BINDING CAPACITY TOTAL DECREASED [None]
  - WEIGHT DECREASED [None]
  - CACHEXIA [None]
  - GLOBULINS DECREASED [None]
  - ACTIVATED PARTIAL THROMBOPLASTIN TIME PROLONGED [None]
  - HYPERTENSION [None]
  - FATIGUE [None]
  - BLOOD ALBUMIN DECREASED [None]
  - RENAL FAILURE [None]
  - LABORATORY TEST ABNORMAL [None]
  - PLATELET COUNT DECREASED [None]
  - PROTHROMBIN TIME PROLONGED [None]
  - WHITE BLOOD CELL COUNT INCREASED [None]
  - RETCHING [None]
  - OEDEMA PERIPHERAL [None]
  - DRY MOUTH [None]
  - DEATH [None]
  - BLOOD CREATININE INCREASED [None]
  - BLOOD UREA INCREASED [None]
  - DIZZINESS POSTURAL [None]
  - BIOPSY KIDNEY ABNORMAL [None]
  - BLOOD GLUCOSE INCREASED [None]
  - DECREASED APPETITE [None]
  - SERUM FERRITIN INCREASED [None]
  - CONSTIPATION [None]
